FAERS Safety Report 6586969-8 (Version None)
Quarter: 2010Q1

REPORT INFORMATION
  Report Type: 
  Country: None (occurrence: None)
  Receive Date: 20100217
  Receipt Date: 20090402
  Transmission Date: 20100710
  Serious: No
  Sender: FDA-Public Use
  Company Number: US-ALLERGAN-0904570US

PATIENT
  Age: 51 Year
  Sex: Female

DRUGS (1)
  1. BOTOX COSMETIC [Suspect]
     Indication: SKIN WRINKLING
     Dosage: UNK, SINGLE
     Route: 030
     Dates: start: 20090324, end: 20090324

REACTIONS (5)
  - DYSPEPSIA [None]
  - HEADACHE [None]
  - HOT FLUSH [None]
  - LYMPH NODE PAIN [None]
  - LYMPHADENOPATHY [None]
